FAERS Safety Report 8760308 (Version 1)
Quarter: 2012Q4

REPORT INFORMATION
  Report Type: Spontaneous
  Country: US (occurrence: None)
  Receive Date: 20120829
  Receipt Date: 20120829
  Transmission Date: 20130627
  Serious: Yes (Life-Threatening)
  Sender: FDA-Public Use
  Company Number: None

PATIENT
  Age: 63 Year
  Sex: Female
  Weight: 104.33 kg

DRUGS (1)
  1. LIDOCAINE [Suspect]
     Indication: SKIN CANCER
     Dates: start: 20120827, end: 20120827

REACTIONS (4)
  - Drug effect decreased [None]
  - Headache [None]
  - Palpitations [None]
  - Anxiety [None]
